FAERS Safety Report 5204414-1 (Version None)
Quarter: 2007Q1

REPORT INFORMATION
  Report Type: 
  Country: None (occurrence: None)
  Receive Date: 20070110
  Receipt Date: 20060320
  Transmission Date: 20070707
  Serious: Yes (Hospitalization)
  Sender: FDA-Public Use
  Company Number: US-BRISTOL-MYERS SQUIBB COMPANY-13320510

PATIENT
  Age: 20 Year
  Sex: Male
  Weight: 106 kg

DRUGS (7)
  1. ABILIFY [Suspect]
     Indication: SCHIZOPHRENIA
     Dosage: PATIENT HAD BEEN TAKING ARIPIPRAZOLE FOR AT LEAST A COUPLE OF YEARS.
     Route: 048
  2. ABILIFY [Suspect]
     Indication: BIPOLAR DISORDER
     Dosage: PATIENT HAD BEEN TAKING ARIPIPRAZOLE FOR AT LEAST A COUPLE OF YEARS.
     Route: 048
  3. MEROPENEM [Concomitant]
  4. VANCOMYCIN [Concomitant]
  5. METRONIDAZOLE [Concomitant]
  6. VERSED [Concomitant]
  7. FENTANYL TRANSDERMAL SYSTEM [Concomitant]

REACTIONS (1)
  - BLOOD CREATINE PHOSPHOKINASE INCREASED [None]
